FAERS Safety Report 10016763 (Version 2)
Quarter: 2014Q2

REPORT INFORMATION
  Report Type: Spontaneous
  Country: FR (occurrence: FR)
  Receive Date: 20140318
  Receipt Date: 20140410
  Transmission Date: 20141212
  Serious: Yes (Hospitalization)
  Sender: FDA-Public Use
  Company Number: PHHY2014FR031073

PATIENT
  Age: 47 Year
  Sex: Male

DRUGS (11)
  1. MYFORTIC [Suspect]
     Indication: RENAL TRANSPLANT
     Dosage: UNK
     Route: 048
     Dates: start: 20140120, end: 20140128
  2. PROGRAF [Suspect]
     Indication: RENAL TRANSPLANT
     Dosage: UNK
     Route: 048
     Dates: start: 20131226, end: 20140129
  3. CELLCEPT [Suspect]
     Indication: RENAL TRANSPLANT
     Dosage: UKN
     Route: 048
     Dates: start: 20131226, end: 20140120
  4. INEXIUM//ESOMEPRAZOLE MAGNESIUM [Suspect]
     Dosage: UNK
     Route: 048
     Dates: start: 20131226, end: 20140129
  5. INEXIUM//ESOMEPRAZOLE MAGNESIUM [Suspect]
     Dosage: REINTRODUCED FOR ABOUT ONE MONTH
  6. OFLOCET [Suspect]
     Indication: PROSTATITIS
     Dosage: UNK
     Route: 048
     Dates: start: 20131231, end: 20140127
  7. CORTANCYL [Suspect]
     Indication: RENAL TRANSPLANT
     Dosage: UNK
     Route: 048
     Dates: start: 20131226
  8. PENTACARINAT [Suspect]
     Indication: ANTIFUNGAL PROPHYLAXIS
     Dosage: 1 INHALATION MONTHLY
     Route: 055
     Dates: start: 20140106
  9. PENTACARINAT [Suspect]
     Dosage: 1 INHALATION MONTHLY
     Route: 055
     Dates: start: 20140205
  10. PENTACARINAT [Suspect]
     Dosage: 1 INHALATION MONTHLY
     Route: 055
     Dates: start: 20140213
  11. COLCHICINE [Suspect]
     Indication: GOUT
     Dosage: UNK
     Route: 048
     Dates: start: 20140104, end: 20140110

REACTIONS (2)
  - Hepatitis cholestatic [Recovered/Resolved]
  - Pancreatitis [Recovered/Resolved]
